FAERS Safety Report 15610778 (Version 1)
Quarter: 2018Q4

REPORT INFORMATION
  Report Type: Spontaneous
  Country: US (occurrence: US)
  Receive Date: 20181113
  Receipt Date: 20181113
  Transmission Date: 20190205
  Serious: No
  Sender: FDA-Public Use
  Company Number: US-ROCHE-2129745

PATIENT
  Sex: Male

DRUGS (4)
  1. PERJETA [Suspect]
     Active Substance: PERTUZUMAB
     Indication: NEUROENDOCRINE TUMOUR
     Dosage: WEEKLY,ONGOING:UNKNOWN
     Route: 042
     Dates: start: 20180515
  2. PERJETA [Suspect]
     Active Substance: PERTUZUMAB
     Indication: OESOPHAGEAL CARCINOMA
  3. TRASTUZUMAB. [Suspect]
     Active Substance: TRASTUZUMAB
     Indication: NEUROENDOCRINE TUMOUR
     Dosage: ONCE,ONGOING:UNKNOWN
     Route: 042
     Dates: start: 20180515
  4. TRASTUZUMAB. [Suspect]
     Active Substance: TRASTUZUMAB
     Indication: OESOPHAGEAL CARCINOMA

REACTIONS (3)
  - Intentional product use issue [Unknown]
  - Off label use [Unknown]
  - No adverse event [Unknown]
